FAERS Safety Report 6188902-X (Version None)
Quarter: 2009Q2

REPORT INFORMATION
  Report Type: 
  Country: None (occurrence: None)
  Receive Date: 20090513
  Receipt Date: 20090505
  Transmission Date: 20091009
  Serious: Yes (Other)
  Sender: FDA-Public Use
  Company Number: PHHY2009BR17541

PATIENT
  Sex: Female
  Weight: 61 kg

DRUGS (9)
  1. DIOVAN [Suspect]
     Indication: HYPERTENSION
     Dosage: ONE TABLET DAILY
     Route: 048
  2. INSULIN [Concomitant]
  3. AMLODIPINE BESYLATE [Concomitant]
     Indication: HYPERTENSION
     Dosage: TWO TABLETS DAILY
     Route: 048
  4. ATENOLOL [Concomitant]
     Indication: HYPERTENSION
     Dosage: ONE TABLET IN THE MORNING AND A HALF TABLET AT NIGHT
     Route: 048
  5. LEXOTAN [Concomitant]
     Indication: SLEEP DISORDER
     Dosage: ONE TABLET AT NIGHT
     Route: 048
  6. RIVOTRIL [Concomitant]
     Indication: SLEEP DISORDER
     Dosage: ONE TABLET AT NIGHT
     Route: 048
     Dates: start: 20090401
  7. PLAVIX [Concomitant]
     Dosage: ONE TABLET DAILY
     Route: 048
     Dates: start: 20060101
  8. METFORMIN HCL [Concomitant]
     Indication: DIABETES MELLITUS
     Dosage: ONE TABLET AFTER THE BREAKFAST, ONE TABLET AFTER THE LUNCH AND ONE TABLET + A HALF AFTER THE DINNER
     Route: 048
     Dates: start: 20040101
  9. FLOTAC [Concomitant]

REACTIONS (10)
  - AGITATION [None]
  - ANAEMIA [None]
  - ANXIETY [None]
  - CANDIDIASIS [None]
  - EPISTAXIS [None]
  - FALL [None]
  - HEAD INJURY [None]
  - HEAT ILLNESS [None]
  - JOINT INJURY [None]
  - PROSTHESIS IMPLANTATION [None]
